FAERS Safety Report 11932556 (Version 4)
Quarter: 2016Q2

REPORT INFORMATION
  Report Type: Spontaneous
  Country: US (occurrence: US)
  Receive Date: 20160120
  Receipt Date: 20160517
  Transmission Date: 20160815
  Serious: Yes (Hospitalization, Other)
  Sender: FDA-Public Use
  Company Number: US-PFIZER INC-2016028458

PATIENT
  Age: 66 Year
  Sex: Female
  Weight: 95.25 kg

DRUGS (6)
  1. TIKOSYN [Concomitant]
     Active Substance: DOFETILIDE
     Indication: HEART RATE ABNORMAL
     Dosage: 500 UG, 2X/DAY (MORNING AND EVENING)
     Dates: start: 20140914
  2. NOVOLIN [Concomitant]
     Active Substance: INSULIN HUMAN
     Indication: DIABETES MELLITUS
     Dosage: 70 UNITS IN MORNING, 60 UNITS IN EVENING
     Dates: start: 20130701
  3. REVATIO [Suspect]
     Active Substance: SILDENAFIL CITRATE
     Indication: PULMONARY HYPERTENSION
     Dosage: 20 MG, 3X/DAY
     Route: 048
     Dates: start: 2016, end: 2016
  4. ENALAPRIL [Concomitant]
     Active Substance: ENALAPRIL
     Indication: BLOOD PRESSURE ABNORMAL
     Dosage: UNK
     Dates: start: 2008, end: 20160304
  5. REVATIO [Suspect]
     Active Substance: SILDENAFIL CITRATE
     Dosage: 20 MG, UNK
  6. TIKOSYN [Concomitant]
     Active Substance: DOFETILIDE
     Indication: ATRIAL FIBRILLATION

REACTIONS (3)
  - Atrial fibrillation [Recovered/Resolved]
  - Cardiac failure [Recovered/Resolved]
  - Drug ineffective [Unknown]
